FAERS Safety Report 9342507 (Version 4)
Quarter: 2014Q2

REPORT INFORMATION
  Report Type: Spontaneous
  Country: IT (occurrence: IT)
  Receive Date: 20130611
  Receipt Date: 20140418
  Transmission Date: 20141212
  Serious: Yes (Death)
  Sender: FDA-Public Use
  Company Number: IT-JNJFOC-20130605035

PATIENT
  Sex: Male
  Weight: 75 kg

DRUGS (2)
  1. TRAMADOL HYDROCHLORIDE [Suspect]
     Indication: PRODUCT USED FOR UNKNOWN INDICATION
     Route: 065
  2. PROPOFOL [Concomitant]
     Indication: PRODUCT USED FOR UNKNOWN INDICATION
     Route: 065

REACTIONS (6)
  - Poisoning [Fatal]
  - Myocardial infarction [Fatal]
  - Overdose [Fatal]
  - Drug abuse [Fatal]
  - Acute respiratory failure [Fatal]
  - Cardiac arrest [Fatal]
